FAERS Safety Report 12995375 (Version 1)
Quarter: 2016Q4

REPORT INFORMATION
  Report Type: Report from Study
  Country: IT (occurrence: IT)
  Receive Date: 20161202
  Receipt Date: 20161202
  Transmission Date: 20170207
  Serious: Yes (Hospitalization, Other)
  Sender: FDA-Public Use
  Company Number: IT-BRISTOL-MYERS SQUIBB COMPANY-BMS-2016-101849

PATIENT
  Age: 73 Year
  Sex: Female

DRUGS (1)
  1. NIVOLUMAB [Suspect]
     Active Substance: NIVOLUMAB
     Indication: RENAL CELL CARCINOMA
     Dosage: 3 MG/KG, Q2WK
     Route: 042
     Dates: start: 20160205, end: 20160907

REACTIONS (8)
  - Hypotension [Unknown]
  - Hyperpyrexia [Unknown]
  - Asthenia [Unknown]
  - Confusional state [Unknown]
  - Acute kidney injury [Unknown]
  - Blood thyroid stimulating hormone increased [Unknown]
  - Disorientation [Unknown]
  - Mood swings [Unknown]

NARRATIVE: CASE EVENT DATE: 20160219
